FAERS Safety Report 9236432 (Version 2)
Quarter: 2013Q2

REPORT INFORMATION
  Report Type: Spontaneous
  Country: ES (occurrence: ES)
  Receive Date: 20130417
  Receipt Date: 20130424
  Transmission Date: 20140414
  Serious: Yes (Hospitalization)
  Sender: FDA-Public Use
  Company Number: PHHY2013ES036162

PATIENT
  Age: 59 Year
  Sex: Male

DRUGS (4)
  1. CISATRACURIUM BESYLATE [Suspect]
  2. DIAZEPAM [Concomitant]
     Indication: GENERAL ANAESTHESIA
  3. FENTANYL [Concomitant]
     Indication: GENERAL ANAESTHESIA
  4. PROPOFOL [Concomitant]
     Indication: GENERAL ANAESTHESIA

REACTIONS (5)
  - Kounis syndrome [Unknown]
  - Supraventricular tachycardia [Unknown]
  - Anaphylactic shock [Unknown]
  - Respiratory disorder [Unknown]
  - Hypotension [Unknown]
